FAERS Safety Report 10084859 (Version 1)
Quarter: 2014Q2

REPORT INFORMATION
  Report Type: Spontaneous
  Country: FR (occurrence: FR)
  Receive Date: 20140417
  Receipt Date: 20140417
  Transmission Date: 20141212
  Serious: Yes (Other)
  Sender: FDA-Public Use
  Company Number: FR-ELI_LILLY_AND_COMPANY-FR201404003746

PATIENT
  Age: 64 Year
  Sex: Female

DRUGS (1)
  1. OPTRUMA [Suspect]
     Indication: OSTEOPOROSIS
     Dosage: 60 MG, QD
     Route: 048
     Dates: start: 20131001, end: 20131031

REACTIONS (4)
  - Rash maculo-papular [Recovered/Resolved]
  - Cheilitis [Recovered/Resolved]
  - Oral disorder [Recovered/Resolved]
  - Drug reaction with eosinophilia and systemic symptoms [Recovered/Resolved]
